FAERS Safety Report 15290002 (Version 1)
Quarter: 2018Q3

REPORT INFORMATION
  Report Type: Spontaneous
  Country: FI (occurrence: FI)
  Receive Date: 20180817
  Receipt Date: 20180817
  Transmission Date: 20181010
  Serious: Yes (Disabling)
  Sender: FDA-Public Use
  Company Number: FI-TEVA-2018-FI-943289

PATIENT
  Age: 73 Year
  Sex: Female

DRUGS (2)
  1. COHEMIN DEPOT [Concomitant]
     Indication: CHRONIC GASTRITIS
     Route: 065
  2. ESCITALOPRAM [Suspect]
     Active Substance: ESCITALOPRAM OXALATE
     Indication: DEPRESSION
     Dosage: 10 MILLIGRAM DAILY;
     Route: 048
     Dates: start: 2016

REACTIONS (7)
  - Sleep disorder [Unknown]
  - Musculoskeletal pain [Unknown]
  - Myalgia [Unknown]
  - Hypoaesthesia [Unknown]
  - Pain in extremity [Unknown]
  - Back pain [Unknown]
  - Paraesthesia [Unknown]

NARRATIVE: CASE EVENT DATE: 2016
